FAERS Safety Report 14902105 (Version 4)
Quarter: 2018Q2

REPORT INFORMATION
  Report Type: Spontaneous
  Country: US (occurrence: US)
  Receive Date: 20180516
  Receipt Date: 20180628
  Transmission Date: 20180711
  Serious: Yes (Other)
  Sender: FDA-Public Use
  Company Number: US-PFIZER INC-2018198817

PATIENT
  Age: 77 Year
  Sex: Female

DRUGS (2)
  1. IBRANCE [Suspect]
     Active Substance: PALBOCICLIB
     Indication: BREAST CANCER FEMALE
     Dosage: 125 MG, CYCLIC (DAILY FOR 21 DAYS EVERY 4 WEEKS)
     Route: 048
     Dates: start: 20180301, end: 20180622
  2. IBRANCE [Suspect]
     Active Substance: PALBOCICLIB
     Dosage: 125 MG, CYCLIC (DAILY 21 DAYS)
     Route: 048
     Dates: start: 20180511

REACTIONS (9)
  - Nausea [Not Recovered/Not Resolved]
  - Weight decreased [Unknown]
  - Insomnia [Unknown]
  - Hot flush [Unknown]
  - Asthenia [Unknown]
  - Neoplasm progression [Unknown]
  - Decreased appetite [Not Recovered/Not Resolved]
  - Pulmonary oedema [Unknown]
  - Fatigue [Unknown]

NARRATIVE: CASE EVENT DATE: 20180511
